FAERS Safety Report 20650999 (Version 1)
Quarter: 2022Q1

REPORT INFORMATION
  Report Type: Other
  Country: US (occurrence: None)
  Receive Date: 20220329
  Receipt Date: 20220329
  Transmission Date: 20220423
  Serious: Yes (Other)
  Sender: FDA-Public Use
  Company Number: US-ROCHE-3057344

PATIENT
  Sex: Male

DRUGS (1)
  1. XOLAIR [Suspect]
     Active Substance: OMALIZUMAB
     Indication: Chronic spontaneous urticaria
     Dosage: INJECT 300MG SUBCUTANEOUSLY EVERY 4 WEEK(S)?VIAL
     Route: 058

REACTIONS (5)
  - Hypertension [Unknown]
  - Diabetes mellitus [Unknown]
  - Arthritis [Unknown]
  - Reading disorder [Unknown]
  - Hypersensitivity [Unknown]
